FAERS Safety Report 17566954 (Version 1)
Quarter: 2020Q1

REPORT INFORMATION
  Report Type: Report from Study
  Country: GB (occurrence: GB)
  Receive Date: 20200320
  Receipt Date: 20200320
  Transmission Date: 20200409
  Serious: Yes (Other)
  Sender: FDA-Public Use
  Company Number: NVSC2020GB078678

PATIENT
  Sex: Female

DRUGS (1)
  1. ERELZI [Suspect]
     Active Substance: ETANERCEPT-SZZS
     Indication: RHEUMATOID ARTHRITIS
     Dosage: 50 MG, QW
     Route: 065
     Dates: start: 20190301

REACTIONS (5)
  - Thrombosis [Unknown]
  - Influenza [Unknown]
  - Injection site haemorrhage [Unknown]
  - Product dose omission [Unknown]
  - Rheumatoid arthritis [Unknown]
